FAERS Safety Report 5132290-4 (Version None)
Quarter: 2006Q4

REPORT INFORMATION
  Report Type: 
  Country: None (occurrence: None)
  Receive Date: 20061019
  Receipt Date: 20061019
  Transmission Date: 20070319
  Serious: Yes (Hospitalization)
  Sender: FDA-Public Use
  Company Number: None

PATIENT
  Age: 42 Year
  Sex: Male
  Weight: 84.4 kg

DRUGS (14)
  1. METRONIDAZOLE [Suspect]
  2. DIPHENHYDRAMINE HCL [Concomitant]
  3. PREDNISONE TAB [Concomitant]
  4. PROCHLORPERAZINE MALEATE [Concomitant]
  5. PROCHLORPERAZINE [Concomitant]
  6. LOPERAMIDE HCL [Concomitant]
  7. NAPROXEN [Concomitant]
  8. KETOROLAC TROMETHAMINE [Concomitant]
  9. OXYCODONE / ACETAMINOPHEN [Concomitant]
  10. GLIPIZIDE [Concomitant]
  11. DIAZEPAM [Concomitant]
  12. HYDROCORTISONE ACETATE [Concomitant]
  13. INSULIN, ASPART, HUMAN [Concomitant]
  14. CYCLOBENZAPRINE HCL [Concomitant]

REACTIONS (2)
  - RASH [None]
  - SWOLLEN TONGUE [None]
